FAERS Safety Report 18641932 (Version 1)
Quarter: 2020Q4

REPORT INFORMATION
  Report Type: Spontaneous
  Country: MY (occurrence: MY)
  Receive Date: 20201221
  Receipt Date: 20201221
  Transmission Date: 20210114
  Serious: Yes (Other)
  Sender: FDA-Public Use
  Company Number: NVSC2020MY335166

PATIENT
  Age: 36 Year
  Sex: Female

DRUGS (1)
  1. TEGRETOL [Suspect]
     Active Substance: CARBAMAZEPINE
     Indication: PAIN
     Dosage: 12 HOUR(S)
     Route: 048

REACTIONS (5)
  - Tonsillar hypertrophy [Recovered/Resolved]
  - Dizziness [Recovered/Resolved]
  - Rash [Recovered/Resolved]
  - Dry mouth [Recovered/Resolved]
  - Pharyngeal ulceration [Recovered/Resolved]
